FAERS Safety Report 14927902 (Version 1)
Quarter: 2018Q2

REPORT INFORMATION
  Report Type: Spontaneous
  Country: US (occurrence: US)
  Receive Date: 20180504
  Receipt Date: 20180504
  Transmission Date: 20180711
  Serious: Yes (Other)
  Sender: FDA-Public Use
  Company Number: None

PATIENT
  Age: 72 Year
  Sex: Male
  Weight: 92.7 kg

DRUGS (8)
  1. CHLORTHALIDONE 25MG [Concomitant]
     Active Substance: CHLORTHALIDONE
  2. LISINOPRIL. [Suspect]
     Active Substance: LISINOPRIL
     Indication: HYPERTENSION
     Route: 048
     Dates: start: 20180212, end: 20180312
  3. ROSUVASTATIN 40 MG [Concomitant]
     Active Substance: ROSUVASTATIN
  4. ASPRIN EC 325 [Concomitant]
     Dates: start: 20160502
  5. ISOSORBIDE MONONITRATE ER 30MG [Concomitant]
  6. REPATHA [Concomitant]
     Active Substance: EVOLOCUMAB
  7. NITROSTAT 0.4 MG [Concomitant]
  8. RANEXA 1000MG [Concomitant]

REACTIONS (1)
  - Cough [None]

NARRATIVE: CASE EVENT DATE: 20180320
